FAERS Safety Report 16223225 (Version 1)
Quarter: 2019Q2

REPORT INFORMATION
  Report Type: Spontaneous
  Country: US (occurrence: US)
  Receive Date: 20190318
  Receipt Date: 20190318
  Transmission Date: 20190711
  Serious: Yes (Other)
  Sender: FDA-Public Use
  Company Number: None

PATIENT
  Age: 42 Year
  Sex: Male

DRUGS (1)
  1. BIKTARVY [Suspect]
     Active Substance: BICTEGRAVIR SODIUM\EMTRICITABINE\TENOFOVIR ALAFENAMIDE FUMARATE
     Indication: HIV INFECTION
     Dosage: ?          OTHER DOSE:50MG-200MG-25MG;?
     Route: 048
     Dates: start: 20190212

REACTIONS (3)
  - Visual impairment [None]
  - Vision blurred [None]
  - Abdominal pain upper [None]

NARRATIVE: CASE EVENT DATE: 20190314
